FAERS Safety Report 5015566-0 (Version None)
Quarter: 2006Q2

REPORT INFORMATION
  Report Type: 
  Country: None (occurrence: None)
  Receive Date: 20060601
  Receipt Date: 20060524
  Transmission Date: 20061013
  Serious: Yes (Death)
  Sender: FDA-Public Use
  Company Number: US-AVENTIS-200614713US

PATIENT
  Sex: Female

DRUGS (2)
  1. CLOMID [Suspect]
     Indication: INFERTILITY
     Dosage: DOSE: UNK
  2. FERTILITY DRUGS NOS [Suspect]

REACTIONS (5)
  - ABDOMINAL DISTENSION [None]
  - DRUG INEFFECTIVE [None]
  - FEELING ABNORMAL [None]
  - OVARIAN CANCER [None]
  - PREGNANCY [None]
